FAERS Safety Report 9959647 (Version 1)
Quarter: 2014Q1

REPORT INFORMATION
  Report Type: Report from Study
  Country: US (occurrence: US)
  Receive Date: 20140305
  Receipt Date: 20140305
  Transmission Date: 20141002
  Serious: No
  Sender: FDA-Public Use
  Company Number: US-ABBVIE-13P-163-1101738-00

PATIENT
  Sex: Female
  Weight: 77.63 kg

DRUGS (13)
  1. HUMIRA [Suspect]
     Indication: RHEUMATOID ARTHRITIS
     Route: 058
     Dates: start: 2007, end: 201205
  2. PREDNISONE [Concomitant]
     Indication: RHEUMATOID ARTHRITIS
  3. METHADONE [Concomitant]
     Indication: PAIN
  4. FISH OIL [Concomitant]
     Indication: PRODUCT USED FOR UNKNOWN INDICATION
  5. VITAMIN E [Concomitant]
     Indication: VITAMIN SUPPLEMENTATION
  6. RESTASIS [Concomitant]
     Indication: DRY EYE
  7. SAM-E [Concomitant]
     Indication: FIBROMYALGIA
  8. TYLENOL ARTHRITIS [Concomitant]
     Indication: RHEUMATOID ARTHRITIS
  9. LYRICA [Concomitant]
     Indication: FIBROMYALGIA
  10. LEXAPRO [Concomitant]
     Indication: DEPRESSION
  11. MULTIVITAMIN [Concomitant]
     Indication: VITAMIN SUPPLEMENTATION
  12. CITRACAL [Concomitant]
     Indication: BONE DISORDER
  13. MELATONIN [Concomitant]
     Indication: PRODUCT USED FOR UNKNOWN INDICATION

REACTIONS (7)
  - Ear pain [Recovered/Resolved]
  - Ear pain [Recovered/Resolved]
  - Otorrhoea [Recovered/Resolved]
  - Fungal infection [Recovered/Resolved]
  - Ear infection bacterial [Recovered/Resolved]
  - Dental caries [Unknown]
  - Tooth extraction [Unknown]
